FAERS Safety Report 23460794 (Version 1)
Quarter: 2024Q1

REPORT INFORMATION
  Report Type: Spontaneous
  Country: IT (occurrence: IT)
  Receive Date: 20240131
  Receipt Date: 20240131
  Transmission Date: 20240410
  Serious: Yes (Other)
  Sender: FDA-Public Use
  Company Number: IT-MYLANLABS-2024M1009467

PATIENT
  Sex: Female

DRUGS (1)
  1. CYSTEAMINE [Suspect]
     Active Substance: CYSTEAMINE
     Indication: Cystinosis
     Dosage: 1 DROP, BID
     Route: 047
     Dates: start: 20151001

REACTIONS (1)
  - Corneal neovascularisation [Not Recovered/Not Resolved]

NARRATIVE: CASE EVENT DATE: 20190601
